FAERS Safety Report 4955861-4 (Version None)
Quarter: 2006Q1

REPORT INFORMATION
  Report Type: 
  Country: None (occurrence: None)
  Receive Date: 20060327
  Receipt Date: 20060327
  Transmission Date: 20060701
  Serious: Yes (Hospitalization)
  Sender: FDA-Public Use
  Company Number: None

PATIENT
  Sex: Male
  Weight: 86.5 kg

DRUGS (5)
  1. CONCERTA [Suspect]
     Indication: ATTENTION DEFICIT/HYPERACTIVITY DISORDER
     Dosage: 1 TAB Q AM 047[ON 36 MG DROM 10/31/05-}DOA AND ON 27 MG FROM 10/3/03.]
     Dates: start: 20031003
  2. CONCERTA [Suspect]
     Indication: ATTENTION DEFICIT/HYPERACTIVITY DISORDER
     Dosage: 1 TAB Q AM 047[ON 36 MG DROM 10/31/05-}DOA AND ON 27 MG FROM 10/3/03.]
     Dates: start: 20051031
  3. MOTRIN [Concomitant]
  4. ECHINACEA [Concomitant]
  5. OTC ALLERGY MEDS [Concomitant]

REACTIONS (3)
  - ASTHENIA [None]
  - CEREBROVASCULAR ACCIDENT [None]
  - DYSARTHRIA [None]
